FAERS Safety Report 8610593-6 (Version None)
Quarter: 2012Q3

REPORT INFORMATION
  Report Type: 
  Country: None (occurrence: None)
  Receive Date: 20120822
  Receipt Date: 20120814
  Transmission Date: 20120928
  Serious: Yes (Hospitalization)
  Sender: FDA-Public Use
  Company Number: BR-US-EMD SERONO, INC.-7142746

PATIENT
  Sex: Female

DRUGS (9)
  1. REBIF [Suspect]
     Indication: RELAPSING-REMITTING MULTIPLE SCLEROSIS
     Route: 058
  2. SOLU-MEDROL [Suspect]
     Indication: HYPOAESTHESIA
  3. ENOXAPARIN SODIUM [Suspect]
     Indication: ASTHENIA
  4. VENLAFAXINE [Concomitant]
     Indication: PRODUCT USED FOR UNKNOWN INDICATION
  5. FLUOXETINE HCL [Concomitant]
     Indication: PRODUCT USED FOR UNKNOWN INDICATION
  6. ENOXAPARIN SODIUM [Suspect]
     Indication: HYPOAESTHESIA
  7. DORFLEX [Concomitant]
     Indication: PRODUCT USED FOR UNKNOWN INDICATION
  8. CARBAMAZEPINE [Concomitant]
     Indication: PRODUCT USED FOR UNKNOWN INDICATION
  9. SOLU-MEDROL [Suspect]
     Indication: ASTHENIA

REACTIONS (5)
  - HYPERAEMIA [None]
  - ASTHENIA [None]
  - MIGRAINE [None]
  - HYPOAESTHESIA [None]
  - FEELING HOT [None]
